FAERS Safety Report 8273906-3 (Version None)
Quarter: 2012Q2

REPORT INFORMATION
  Report Type: 
  Country: None (occurrence: None)
  Receive Date: 20120411
  Receipt Date: 20120404
  Transmission Date: 20120825
  Serious: Yes (Life-Threatening, Hospitalization, Disabling, Other)
  Sender: FDA-Public Use
  Company Number: US-CELGENEUS-163-21880-12030572

PATIENT
  Sex: Female

DRUGS (21)
  1. EPOGEN [Concomitant]
     Dosage: 10000 UNITS
     Route: 058
  2. GENTAMICIN [Concomitant]
     Dosage: BOTH EYES
     Route: 047
  3. FAMOTIDINE [Concomitant]
     Dosage: 20 MILLIGRAM
     Route: 065
  4. PROCRIT [Concomitant]
     Route: 065
  5. MEGACE [Concomitant]
     Dosage: 800 MILLIGRAM
     Route: 065
  6. LOSARTAN POTASSIUM [Concomitant]
     Dosage: 100 MILLIGRAM
     Route: 065
  7. ICAR-C [Concomitant]
     Dosage: 100/250MG
     Route: 065
  8. GABAPENTIN [Concomitant]
     Dosage: 100 MILLIGRAM
     Route: 048
  9. COREG [Concomitant]
     Dosage: 3.125 MILLIGRAM
     Route: 065
  10. DIOVAN HCT [Concomitant]
     Indication: HYPERTENSION
     Dosage: 160/25
     Route: 065
  11. MIRALAX [Concomitant]
     Dosage: 17 GRAM
     Route: 065
     Dates: start: 20110101
  12. COREG [Concomitant]
     Dosage: 6.25 MILLIGRAM
     Route: 065
  13. REGLAN [Concomitant]
     Dosage: 5 MILLIGRAM
     Route: 065
  14. AMARYL [Concomitant]
     Dosage: 1 MILLIGRAM
     Route: 048
  15. REVLIMID [Suspect]
     Indication: MULTIPLE MYELOMA
     Dosage: 25 MILLIGRAM
     Route: 048
     Dates: start: 20111201
  16. ASPIRIN [Concomitant]
     Dosage: 325 MILLIGRAM
     Route: 065
     Dates: start: 20100329
  17. ARICEPT [Concomitant]
     Dosage: 5 MILLIGRAM
     Route: 065
  18. GLUCERNA [Concomitant]
     Route: 048
  19. COZAAR [Concomitant]
     Dosage: 25 MILLIGRAM
     Route: 048
  20. INSULIN [Concomitant]
     Dosage: SLIDING SCALE
     Route: 065
  21. MEGACE [Concomitant]
     Dosage: 400 MILLIGRAM
     Route: 048

REACTIONS (3)
  - URINARY TRACT INFECTION [None]
  - ATRIAL FLUTTER [None]
  - CEREBROVASCULAR ACCIDENT [None]
